FAERS Safety Report 4994207-2 (Version None)
Quarter: 2006Q2

REPORT INFORMATION
  Report Type: 
  Country: None (occurrence: None)
  Receive Date: 20060503
  Receipt Date: 20060424
  Transmission Date: 20061013
  Serious: Yes (Other)
  Sender: FDA-Public Use
  Company Number: 163-20785-06040918

PATIENT
  Age: 49 Year
  Sex: Male
  Weight: 82.5547 kg

DRUGS (2)
  1. THALOMID [Suspect]
     Indication: PELVIC PAIN
     Dosage: 100 MG, AT BEDTIME, ORAL
     Route: 048
     Dates: start: 20060418, end: 20060419
  2. THALOMID [Suspect]
     Indication: PROSTATITIS
     Dosage: 100 MG, AT BEDTIME, ORAL
     Route: 048
     Dates: start: 20060418, end: 20060419

REACTIONS (5)
  - DISORIENTATION [None]
  - EYE MOVEMENT DISORDER [None]
  - FEELING ABNORMAL [None]
  - HYPOAESTHESIA ORAL [None]
  - MUSCLE TWITCHING [None]
